FAERS Safety Report 7728183-6 (Version None)
Quarter: 2011Q3

REPORT INFORMATION
  Report Type: 
  Country: None (occurrence: None)
  Receive Date: 20110905
  Receipt Date: 20110822
  Transmission Date: 20111222
  Serious: Yes (Other)
  Sender: FDA-Public Use
  Company Number: PHEH2011US02145

PATIENT
  Sex: Female

DRUGS (2)
  1. LORTAB [Concomitant]
     Indication: PAIN
     Dosage: 10 MG
  2. RECLAST [Suspect]
     Dosage: UNK UKN, UNK
     Route: 042
     Dates: start: 20100913

REACTIONS (1)
  - BLADDER DISCOMFORT [None]
